FAERS Safety Report 13031635 (Version 1)
Quarter: 2016Q4

REPORT INFORMATION
  Report Type: Spontaneous
  Country: FR (occurrence: FR)
  Receive Date: 20161215
  Receipt Date: 20161215
  Transmission Date: 20170207
  Serious: Yes (Hospitalization)
  Sender: FDA-Public Use
  Company Number: FR-SA-2016SA225988

PATIENT
  Age: 67 Year
  Sex: Female
  Weight: 66 kg

DRUGS (23)
  1. POLARAMINE [Concomitant]
     Active Substance: DEXCHLORPHENIRAMINE MALEATE
     Dates: start: 20161115
  2. TIORFAN [Concomitant]
     Active Substance: RACECADOTRIL
  3. DIFFU K [Concomitant]
     Active Substance: POTASSIUM CHLORIDE
  4. PERFALGAN [Concomitant]
     Active Substance: ACETAMINOPHEN
     Dates: start: 20161115
  5. LEDERFOLINE [Concomitant]
     Active Substance: LEUCOVORIN CALCIUM
  6. AMLOR [Concomitant]
     Active Substance: AMLODIPINE BESYLATE
  7. FLAGYL [Interacting]
     Active Substance: METRONIDAZOLE\METRONIDAZOLE HYDROCHLORIDE
     Indication: COLITIS
     Route: 065
     Dates: start: 20161109, end: 20161119
  8. CORTANCYL [Interacting]
     Active Substance: PREDNISONE
     Indication: TEMPORAL ARTERITIS
     Route: 065
  9. ZELITREX [Suspect]
     Active Substance: VALACYCLOVIR HYDROCHLORIDE
     Route: 048
  10. ARANESP [Concomitant]
     Active Substance: DARBEPOETIN ALFA
  11. MABTHERA [Concomitant]
     Active Substance: RITUXIMAB
     Indication: CENTRAL NERVOUS SYSTEM LYMPHOMA
     Route: 042
     Dates: start: 20161031
  12. TOPALGIC LP [Concomitant]
     Active Substance: TRAMADOL
  13. METHYLPREDNISOLONE. [Interacting]
     Active Substance: METHYLPREDNISOLONE
     Route: 065
     Dates: start: 20161112
  14. TEMODAL [Concomitant]
     Active Substance: TEMOZOLOMIDE
     Route: 048
     Dates: start: 20161115
  15. APROVEL [Suspect]
     Active Substance: IRBESARTAN
     Route: 048
  16. BACTRIM [Interacting]
     Active Substance: SULFAMETHOXAZOLE\TRIMETHOPRIM
     Route: 065
     Dates: end: 20161030
  17. ARANESP [Concomitant]
     Active Substance: DARBEPOETIN ALFA
  18. ALPRAZOLAM. [Concomitant]
     Active Substance: ALPRAZOLAM
  19. SEROPLEX [Concomitant]
     Active Substance: ESCITALOPRAM OXALATE
     Dates: start: 201611
  20. METHOTREXATE. [Suspect]
     Active Substance: METHOTREXATE
     Indication: CENTRAL NERVOUS SYSTEM LYMPHOMA
     Route: 042
     Dates: start: 20160915, end: 20161109
  21. CALCIDOSE [Concomitant]
     Active Substance: CALCIUM CARBONATE
  22. LOVENOX [Concomitant]
     Active Substance: ENOXAPARIN SODIUM
  23. CEFTRIAXONE. [Concomitant]
     Active Substance: CEFTRIAXONE
     Indication: CLOSTRIDIUM DIFFICILE COLITIS
     Dates: start: 20161110, end: 20161117

REACTIONS (3)
  - Incorrect disposal of product [Unknown]
  - Acute kidney injury [Recovering/Resolving]
  - Drug interaction [Unknown]

NARRATIVE: CASE EVENT DATE: 20161120
